FAERS Safety Report 6933040-9 (Version None)
Quarter: 2010Q3

REPORT INFORMATION
  Report Type: 
  Country: None (occurrence: None)
  Receive Date: 20100818
  Receipt Date: 20100818
  Transmission Date: 20110219
  Serious: No
  Sender: FDA-Public Use
  Company Number: None

PATIENT
  Weight: 28.2 kg

DRUGS (2)
  1. CARBOPLATIN [Suspect]
     Indication: DYSPNOEA
     Dosage: 110 MG
     Dates: end: 20100813
  2. TAXOL [Suspect]
     Dosage: 48 MG
     Dates: end: 20100813

REACTIONS (2)
  - PNEUMOTHORAX [None]
  - PROCEDURAL COMPLICATION [None]
